FAERS Safety Report 25482804 (Version 1)
Quarter: 2025Q2

REPORT INFORMATION
  Report Type: Spontaneous
  Country: JP (occurrence: JP)
  Receive Date: 20250626
  Receipt Date: 20250626
  Transmission Date: 20250716
  Serious: Yes (Hospitalization, Disabling, Other)
  Sender: JOHNSON AND JOHNSON
  Company Number: JP-BAYER-2025A022945

PATIENT
  Age: 77 Year
  Sex: Female

DRUGS (2)
  1. RIVAROXABAN [Suspect]
     Active Substance: RIVAROXABAN
     Indication: Atrial fibrillation
     Route: 048
     Dates: start: 20241220, end: 20250131
  2. RIVAROXABAN [Suspect]
     Active Substance: RIVAROXABAN
     Route: 048
     Dates: start: 202502, end: 202504

REACTIONS (2)
  - Pemphigoid [Recovering/Resolving]
  - Pemphigoid [Unknown]

NARRATIVE: CASE EVENT DATE: 20241223
